FAERS Safety Report 21153639 (Version 1)
Quarter: 2022Q3

REPORT INFORMATION
  Report Type: Spontaneous
  Country: CN (occurrence: CN)
  Receive Date: 20220801
  Receipt Date: 20220801
  Transmission Date: 20221026
  Serious: Yes (Hospitalization, Other)
  Sender: FDA-Public Use
  Company Number: None

PATIENT
  Age: 16 Year
  Sex: Male
  Weight: 61 kg

DRUGS (8)
  1. CYCLOPHOSPHAMIDE [Suspect]
     Active Substance: CYCLOPHOSPHAMIDE
     Indication: Acute lymphocytic leukaemia
     Dosage: 1600 MG QD, (CYCLOPHOSPHAMIDE 1600 MG + 0.9% SODIUM CHLORIDE 500 ML)
     Route: 041
     Dates: start: 20220629, end: 20220629
  2. SODIUM CHLORIDE [Suspect]
     Active Substance: SODIUM CHLORIDE
     Indication: Medication dilution
     Dosage: 500 ML QD, (CYCLOPHOSPHAMIDE 1600 MG + 0.9% SODIUM CHLORIDE 500 ML)
     Route: 041
     Dates: start: 20220629, end: 20220629
  3. SODIUM CHLORIDE [Suspect]
     Active Substance: SODIUM CHLORIDE
     Dosage: 250 ML, ONCE/2 DAYS (CYTARABINE HYDROCHLORIDE FOR INJECTION 50 MG + 0.9% SODIUM CHLORIDE INJECTION 2
     Route: 041
     Dates: start: 20220629, end: 20220705
  4. SODIUM CHLORIDE [Suspect]
     Active Substance: SODIUM CHLORIDE
     Dosage: 36 ML, QD (CYTARABINE HYDROCHLORIDE FOR INJECTION 50 MG DILUTED WITH SODIUM CHLORIDE INJECTION 36 ML
     Route: 037
     Dates: start: 20220630, end: 20220630
  5. SODIUM CHLORIDE [Suspect]
     Active Substance: SODIUM CHLORIDE
     Dosage: 36 ML, QD (METHOTREXATE FOR INJECTION 10 MG ONCE DILUTED WITH SODIUM CHLORIDE INJECTION 36 ML)
     Route: 037
  6. METHOTREXATE [Suspect]
     Active Substance: METHOTREXATE
     Indication: Acute lymphocytic leukaemia
     Dosage: 10 MG QD, (METHOTREXATE FOR INJECTION 10 MG ONCE DILUTED WITH SODIUM CHLORIDE INJECTION 36 ML)
     Route: 037
     Dates: start: 20220630, end: 20220630
  7. CYTARABINE HYDROCHLORIDE [Suspect]
     Active Substance: CYTARABINE HYDROCHLORIDE
     Indication: Acute lymphocytic leukaemia
     Dosage: 50 MG, FREQUENCY: ONCE/2 DAYS (CYTARABINE HYDROCHLORIDE 50 MG + 0.9% SODIUM CHLORIDE 250 ML)
     Route: 041
     Dates: start: 20220629, end: 20220705
  8. CYTARABINE HYDROCHLORIDE [Suspect]
     Active Substance: CYTARABINE HYDROCHLORIDE
     Dosage: 50 MG, QD, (CYTARABINE HYDROCHLORIDE FOR INJECTION 50 MG DILUTED WITH SODIUM CHLORIDE INJECTION 36 M
     Route: 037
     Dates: start: 20220630, end: 20220630

REACTIONS (2)
  - Myelosuppression [Recovering/Resolving]
  - Thrombocytopenia [Recovering/Resolving]

NARRATIVE: CASE EVENT DATE: 20220711
